FAERS Safety Report 11300729 (Version 1)
Quarter: 2015Q3

REPORT INFORMATION
  Report Type: Spontaneous
  Country: US (occurrence: US)
  Receive Date: 20150722
  Receipt Date: 20150722
  Transmission Date: 20151125
  Serious: Yes (Other)
  Sender: FDA-Public Use
  Company Number: US-ELI_LILLY_AND_COMPANY-US201210009494

PATIENT
  Age: 52 Year
  Sex: Male

DRUGS (4)
  1. ASPIRIN. [Concomitant]
     Active Substance: ASPIRIN
  2. ANGIOMAX [Concomitant]
     Active Substance: BIVALIRUDIN
  3. INTEGRILIN [Concomitant]
     Active Substance: EPTIFIBATIDE
  4. EFFIENT [Suspect]
     Active Substance: PRASUGREL HYDROCHLORIDE
     Indication: ACUTE MYOCARDIAL INFARCTION
     Dosage: 60 MG, SINGLE
     Dates: start: 20121013, end: 20121013

REACTIONS (1)
  - Gastrointestinal haemorrhage [Unknown]
